FAERS Safety Report 24382871 (Version 1)
Quarter: 2024Q4

REPORT INFORMATION
  Report Type: Spontaneous
  Country: US (occurrence: US)
  Receive Date: 20241001
  Receipt Date: 20241001
  Transmission Date: 20250115
  Serious: No
  Sender: ROCHE
  Company Number: US-ROCHE-10000092157

PATIENT
  Age: 75 Year
  Sex: Male

DRUGS (3)
  1. SATRALIZUMAB-MWGE [Suspect]
     Active Substance: SATRALIZUMAB-MWGE
     Indication: Neuromyelitis optica spectrum disorder
     Route: 058
  2. SATRALIZUMAB-MWGE [Suspect]
     Active Substance: SATRALIZUMAB-MWGE
  3. SATRALIZUMAB-MWGE [Suspect]
     Active Substance: SATRALIZUMAB-MWGE

REACTIONS (2)
  - Urinary tract infection [Unknown]
  - Pneumonia [Unknown]

NARRATIVE: CASE EVENT DATE: 20240912
